FAERS Safety Report 7360523-2 (Version None)
Quarter: 2011Q1

REPORT INFORMATION
  Report Type: 
  Country: None (occurrence: None)
  Receive Date: 20110318
  Receipt Date: 20110309
  Transmission Date: 20110831
  Serious: Yes (Other)
  Sender: FDA-Public Use
  Company Number: IT-JNJFOC-20110304848

PATIENT
  Sex: Female

DRUGS (3)
  1. CAELYX [Suspect]
     Indication: BREAST CANCER
     Route: 042
  2. CHLORPHENIRAMINE MALEATE [Concomitant]
     Indication: PREMEDICATION
     Route: 030
  3. DEXAMETHASONE [Concomitant]
     Indication: PREMEDICATION
     Route: 042

REACTIONS (2)
  - LARYNGOSPASM [None]
  - LACRIMATION INCREASED [None]
